FAERS Safety Report 19395371 (Version 4)
Quarter: 2022Q1

REPORT INFORMATION
  Report Type: Spontaneous
  Country: US (occurrence: US)
  Receive Date: 20210609
  Receipt Date: 20220228
  Transmission Date: 20220423
  Serious: Yes (Other)
  Sender: FDA-Public Use
  Company Number: US-BAYER-2021-151923

PATIENT
  Age: 51 Year
  Sex: Female
  Weight: 79.819 kg

DRUGS (8)
  1. MIRENA [Suspect]
     Active Substance: LEVONORGESTREL
     Indication: Heavy menstrual bleeding
     Dosage: 20?G/DAY
     Route: 015
     Dates: start: 20180709, end: 20210604
  2. MIRENA [Suspect]
     Active Substance: LEVONORGESTREL
     Indication: Dysmenorrhoea
  3. MIRENA [Suspect]
     Active Substance: LEVONORGESTREL
     Indication: Contraception
  4. CALCIUM CARBONATE [Concomitant]
     Active Substance: CALCIUM CARBONATE
     Dosage: 600 MG
     Route: 048
  5. CYANOCOBALAMIN [Concomitant]
     Active Substance: CYANOCOBALAMIN
     Dosage: UNK
     Route: 048
  6. LEXAPRO [Concomitant]
     Active Substance: ESCITALOPRAM OXALATE
     Dosage: 5 MG
     Route: 048
  7. MIRAPEX [Concomitant]
     Active Substance: PRAMIPEXOLE DIHYDROCHLORIDE
     Dosage: 0.25 MG, BID
  8. CLARITHROMYCIN [Concomitant]
     Active Substance: CLARITHROMYCIN
     Route: 048

REACTIONS (17)
  - Device breakage [Recovering/Resolving]
  - Embedded device [Recovering/Resolving]
  - Device expulsion [Recovering/Resolving]
  - Medical device discomfort [Recovering/Resolving]
  - Complication of device removal [None]
  - Complication of device removal [None]
  - Abdominal pain lower [Recovered/Resolved]
  - Pelvic pain [Recovered/Resolved]
  - Device physical property issue [None]
  - Abdominal pain [Recovering/Resolving]
  - Amenorrhoea [None]
  - Hot flush [None]
  - Night sweats [None]
  - Pollakiuria [None]
  - Presyncope [None]
  - Libido decreased [None]
  - Breast tenderness [None]

NARRATIVE: CASE EVENT DATE: 20180816
